FAERS Safety Report 5022726-1 (Version None)
Quarter: 2006Q2

REPORT INFORMATION
  Report Type: 
  Country: None (occurrence: None)
  Receive Date: 20060609
  Receipt Date: 20060601
  Transmission Date: 20061013
  Serious: Yes (Other)
  Sender: FDA-Public Use
  Company Number: AT-ABBOTT-06P-009-0334944-00

PATIENT
  Age: 55 Year
  Sex: Male
  Weight: 136 kg

DRUGS (9)
  1. ZEMPLAR [Suspect]
     Indication: HYPERPARATHYROIDISM SECONDARY
     Route: 042
     Dates: start: 20051116, end: 20060215
  2. ZEMPLAR [Suspect]
     Route: 042
     Dates: start: 20060325, end: 20060512
  3. ANTIPHOSPHAT [Concomitant]
     Indication: HYPERPARATHYROIDISM
     Route: 048
     Dates: start: 20040708, end: 20051217
  4. ANTIPHOSPHAT [Concomitant]
     Route: 048
     Dates: start: 20051218, end: 20060512
  5. SEVELAMER HYDROCHLORIDE [Concomitant]
     Indication: HYPERPARATHYROIDISM
     Route: 065
     Dates: start: 20050209, end: 20060502
  6. SEVELAMER HYDROCHLORIDE [Concomitant]
     Route: 065
     Dates: start: 20060503, end: 20060512
  7. CALCITRIOL [Concomitant]
     Indication: HYPERPARATHYROIDISM
     Route: 065
  8. MIMPARA [Concomitant]
     Indication: HYPERPARATHYROIDISM
     Dates: start: 20050826, end: 20051125
  9. MIMPARA [Concomitant]
     Dates: start: 20051126, end: 20060512

REACTIONS (2)
  - CALCINOSIS [None]
  - HYPERPHOSPHATAEMIA [None]
